FAERS Safety Report 4365930-8 (Version None)
Quarter: 2004Q2

REPORT INFORMATION
  Report Type: 
  Country: None (occurrence: None)
  Receive Date: 20040520
  Receipt Date: 20040512
  Transmission Date: 20050107
  Serious: Yes (Hospitalization)
  Sender: FDA-Public Use
  Company Number: JP-JNJFOC-20040400665

PATIENT
  Age: 75 Year
  Sex: Female

DRUGS (3)
  1. OFLOXACIN [Suspect]
     Indication: DIARRHOEA
     Dosage: 200 MG, 1 IN 1 DAY, ORAL
     Route: 048
     Dates: start: 20031230, end: 20040102
  2. FLAGYL [Suspect]
     Indication: DIARRHOEA
     Dosage: 1.5 G , ORAL
     Route: 048
     Dates: start: 20031218, end: 20040102
  3. DIHYDROERGOTAMINE MESYLATE [Suspect]
     Indication: PINEALOMA
     Dosage: 10MG, ORAL
     Route: 048
     Dates: end: 20040102

REACTIONS (4)
  - ARTERIAL THROMBOSIS LIMB [None]
  - BLOOD FIBRINOGEN INCREASED [None]
  - PLATELET COUNT INCREASED [None]
  - WHITE BLOOD CELL COUNT INCREASED [None]
